FAERS Safety Report 9225591 (Version 6)
Quarter: 2014Q1

REPORT INFORMATION
  Report Type: Report from Study
  Country: ES (occurrence: ES)
  Receive Date: 20130411
  Receipt Date: 20140219
  Transmission Date: 20141002
  Serious: Yes (Hospitalization)
  Sender: FDA-Public Use
  Company Number: ES-ROCHE-1211489

PATIENT
  Age: 67 Year
  Sex: Female
  Weight: 75.9 kg

DRUGS (7)
  1. TRASTUZUMAB EMTANSINE [Suspect]
     Indication: BREAST CANCER METASTATIC
     Dosage: LAST DOSE PRIOR TO SAE 21/MAR/2013
     Route: 042
     Dates: start: 20130321
  2. TRASTUZUMAB [Suspect]
     Indication: BREAST CANCER METASTATIC
     Dosage: LAST DOSE TAKEN: 462 MG
     Route: 042
     Dates: start: 20120705, end: 20130213
  3. GEMCITABINE [Suspect]
     Indication: BREAST CANCER METASTATIC
     Dosage: LAST DOSE PRIOR TO ADVERSE EVENT 27/FEB/2013, LAST DOSE TAKEN: 1730 MG
     Route: 042
     Dates: start: 20120705, end: 20130227
  4. ENALAPRIL [Concomitant]
     Indication: HYPERTENSION
  5. EPOETIN BETA [Concomitant]
     Indication: ANAEMIA
     Route: 065
     Dates: start: 20120816
  6. PARACETAMOL [Concomitant]
     Indication: PYREXIA
     Route: 065
     Dates: start: 20120823
  7. ENOXAPARINA [Concomitant]
     Indication: ANTICOAGULANT THERAPY
     Route: 065
     Dates: start: 20130405

REACTIONS (1)
  - Hepatotoxicity [Not Recovered/Not Resolved]
